FAERS Safety Report 18440598 (Version 2)
Quarter: 2021Q1

REPORT INFORMATION
  Report Type: Report from Study
  Country: US (occurrence: US)
  Receive Date: 20201029
  Receipt Date: 20210317
  Transmission Date: 20210419
  Serious: Yes (Hospitalization)
  Sender: FDA-Public Use
  Company Number: US-PFIZER INC-2020417594

PATIENT
  Age: 64 Year
  Sex: Male

DRUGS (3)
  1. CABOMETYX [Suspect]
     Active Substance: CABOZANTINIB S-MALATE
     Indication: BLADDER CANCER
     Dosage: 20 MG, 1X/DAY
     Route: 048
     Dates: start: 20171017
  2. CABOMETYX [Suspect]
     Active Substance: CABOZANTINIB S-MALATE
     Indication: MALIGNANT NEOPLASM OF RENAL PELVIS
  3. GLIPIZIDE. [Suspect]
     Active Substance: GLIPIZIDE
     Dosage: UNK (ACCEDENTLLY TOOK ONE PILL)
     Dates: start: 20200824, end: 20200825

REACTIONS (3)
  - Blood glucose decreased [Unknown]
  - Accidental exposure to product [Unknown]
  - Blood magnesium decreased [Unknown]

NARRATIVE: CASE EVENT DATE: 20200824
